FAERS Safety Report 7790982-2 (Version None)
Quarter: 2011Q4

REPORT INFORMATION
  Report Type: 
  Country: None (occurrence: None)
  Receive Date: 20111002
  Receipt Date: 20110921
  Transmission Date: 20120403
  Serious: Yes (Hospitalization, Other)
  Sender: FDA-Public Use
  Company Number: PHHY2011AR58704

PATIENT
  Sex: Female

DRUGS (2)
  1. ONBREZ [Suspect]
     Dosage: 150 UG, BID
     Dates: start: 20110810
  2. ONBREZ [Suspect]
     Indication: CHRONIC OBSTRUCTIVE PULMONARY DISEASE
     Dosage: 150 UG, BID
     Dates: end: 20110711

REACTIONS (6)
  - DRUG INEFFECTIVE [None]
  - FATIGUE [None]
  - ARTHRALGIA [None]
  - MUSCULOSKELETAL PAIN [None]
  - HERPES VIRUS INFECTION [None]
  - HERPES OPHTHALMIC [None]
